FAERS Safety Report 6497326-7 (Version None)
Quarter: 2009Q4

REPORT INFORMATION
  Report Type: 
  Country: None (occurrence: None)
  Receive Date: 20091215
  Receipt Date: 20091106
  Transmission Date: 20100525
  Serious: No
  Sender: FDA-Public Use
  Company Number: A0808672A

PATIENT
  Age: 74 Year
  Sex: Male

DRUGS (12)
  1. AVODART [Suspect]
     Indication: BENIGN PROSTATIC HYPERPLASIA
     Dosage: .5MG PER DAY
     Route: 048
     Dates: start: 20090710
  2. PROSTATE MEDICATION [Concomitant]
  3. COQ10 [Concomitant]
  4. METFORMIN HCL [Concomitant]
  5. AMARYL [Concomitant]
  6. METHOTREXATE [Concomitant]
  7. DIOVAN [Concomitant]
  8. SIMVASTATIN [Concomitant]
  9. GEMFIBROZIL [Concomitant]
  10. FOLIC ACID [Concomitant]
  11. ASPIRIN [Concomitant]
  12. PROSTATE FORMULA [Concomitant]

REACTIONS (3)
  - BLOOD GLUCOSE INCREASED [None]
  - RECTAL SPASM [None]
  - SEMEN VOLUME DECREASED [None]
